FAERS Safety Report 18992807 (Version 1)
Quarter: 2021Q1

REPORT INFORMATION
  Report Type: Report from Study
  Country: CA (occurrence: CA)
  Receive Date: 20210310
  Receipt Date: 20210310
  Transmission Date: 20210420
  Serious: Yes (Death)
  Sender: FDA-Public Use
  Company Number: CA-PFIZER INC-2021233695

PATIENT
  Age: 50 Year
  Sex: Male

DRUGS (15)
  1. RANITIDINE. [Concomitant]
     Active Substance: RANITIDINE
  2. ROSUVASTATIN. [Concomitant]
     Active Substance: ROSUVASTATIN
     Route: 058
  3. BENADRYL [Concomitant]
     Active Substance: DIPHENHYDRAMINE HYDROCHLORIDE
     Indication: PREMEDICATION
     Dosage: 50 MG
     Route: 048
  4. INSULIN [Concomitant]
     Active Substance: INSULIN NOS
  5. PREDNISONE. [Concomitant]
     Active Substance: PREDNISONE
  6. ROCALTROL [Concomitant]
     Active Substance: CALCITRIOL
  7. ARANESP [Concomitant]
     Active Substance: DARBEPOETIN ALFA
  8. METHYLPREDNISOLONE SODIUM SUCCINATE. [Concomitant]
     Active Substance: METHYLPREDNISOLONE SODIUM SUCCINATE
     Indication: PREMEDICATION
     Dosage: 100 MG
     Route: 042
  9. TYLENOL [Concomitant]
     Active Substance: ACETAMINOPHEN
     Dosage: UNK
  10. RABEPRAZOLE [Concomitant]
     Active Substance: RABEPRAZOLE
  11. RUPATADINE FUMARATE [Concomitant]
     Active Substance: RUPATADINE FUMARATE
     Indication: PREMEDICATION
     Dosage: 650 MG
     Route: 048
  12. RITUXIMAB. [Suspect]
     Active Substance: RITUXIMAB
     Indication: GRANULOMATOSIS WITH POLYANGIITIS
     Dosage: 1000 MG, 1 EVERY 15 DAYS
     Route: 017
  13. EPOETIN ALFA [Concomitant]
     Active Substance: ERYTHROPOIETIN
  14. IRON [Concomitant]
     Active Substance: IRON
     Dosage: 12 DF
     Route: 042
  15. LORAZEPAM. [Concomitant]
     Active Substance: LORAZEPAM

REACTIONS (1)
  - Death [Fatal]
